FAERS Safety Report 21465645 (Version 1)
Quarter: 2022Q4

REPORT INFORMATION
  Report Type: Report from Study
  Country: US (occurrence: US)
  Receive Date: 20221017
  Receipt Date: 20221017
  Transmission Date: 20230112
  Serious: Yes (Hospitalization, Other)
  Sender: FDA-Public Use
  Company Number: US-BRISTOL-MYERS SQUIBB COMPANY-2022-121776

PATIENT
  Age: 53 Year
  Sex: Female
  Weight: 52.16 kg

DRUGS (5)
  1. CARBOPLATIN [Suspect]
     Active Substance: CARBOPLATIN
     Indication: Head and neck cancer
     Route: 065
     Dates: start: 20220603, end: 20220715
  2. HYDROXYUREA [Suspect]
     Active Substance: HYDROXYUREA
     Indication: Head and neck cancer
     Route: 065
     Dates: start: 20220807, end: 20221005
  3. NIVOLUMAB [Suspect]
     Active Substance: NIVOLUMAB
     Indication: Head and neck cancer
     Route: 065
     Dates: start: 20220603, end: 20220715
  4. PACLITAXEL [Suspect]
     Active Substance: PACLITAXEL
     Indication: Head and neck cancer
     Route: 065
     Dates: start: 20220603, end: 20220729
  5. FLUOROURACIL [Suspect]
     Active Substance: FLUOROURACIL
     Indication: Head and neck cancer
     Route: 065
     Dates: start: 20220807, end: 20221005

REACTIONS (3)
  - Dysphagia [Unknown]
  - Malnutrition [Unknown]
  - Failure to thrive [Unknown]

NARRATIVE: CASE EVENT DATE: 20221012
